FAERS Safety Report 7338049-1 (Version None)
Quarter: 2011Q1

REPORT INFORMATION
  Report Type: 
  Country: None (occurrence: None)
  Receive Date: 20110308
  Receipt Date: 20110303
  Transmission Date: 20110831
  Serious: Yes (Other)
  Sender: FDA-Public Use
  Company Number: US-JNJFOC-20100905892

PATIENT

DRUGS (2)
  1. LEVAQUIN [Suspect]
     Indication: URINARY TRACT INFECTION
     Route: 048
  2. LEVAQUIN [Suspect]
     Route: 048

REACTIONS (4)
  - CARPAL TUNNEL SYNDROME [None]
  - ROTATOR CUFF SYNDROME [None]
  - MUSCULOSKELETAL PAIN [None]
  - TENDONITIS [None]
